FAERS Safety Report 25060115 (Version 1)
Quarter: 2025Q1

REPORT INFORMATION
  Report Type: Spontaneous
  Country: US (occurrence: US)
  Receive Date: 20250310
  Receipt Date: 20250310
  Transmission Date: 20250408
  Serious: No
  Sender: SANOFI AVENTIS
  Company Number: US-SA-2025SA067049

PATIENT
  Age: 53 Year
  Sex: Female

DRUGS (2)
  1. DUPIXENT [Suspect]
     Active Substance: DUPILUMAB
     Indication: Dermatitis atopic
  2. COVID-19 VACCINE [Concomitant]

REACTIONS (10)
  - Pruritus [Unknown]
  - Scratch [Unknown]
  - Skin fissures [Unknown]
  - Blister [Unknown]
  - Acne [Unknown]
  - Rash [Unknown]
  - Urticaria [Unknown]
  - Sleep disorder due to a general medical condition [Unknown]
  - COVID-19 [Unknown]
  - Therapeutic response decreased [Unknown]
